FAERS Safety Report 17156416 (Version 1)
Quarter: 2019Q4

REPORT INFORMATION
  Report Type: Spontaneous
  Country: SE (occurrence: SE)
  Receive Date: 20191216
  Receipt Date: 20191216
  Transmission Date: 20200122
  Serious: Yes (Other)
  Sender: FDA-Public Use
  Company Number: SE-TEVA-2019-SE-1151247

PATIENT
  Age: 35 Year
  Sex: Male

DRUGS (2)
  1. ALLOPURINOL TEVA 100 MG TABLETT [Suspect]
     Active Substance: ALLOPURINOL
     Indication: GOUT
     Dosage: 100 MG
     Route: 048
     Dates: start: 20181105
  2. DIKLOFENAK [Concomitant]
     Active Substance: DICLOFENAC SODIUM

REACTIONS (3)
  - Teratospermia [Not Recovered/Not Resolved]
  - Oligospermia [Not Recovered/Not Resolved]
  - Organic erectile dysfunction [Not Recovered/Not Resolved]

NARRATIVE: CASE EVENT DATE: 201908
